FAERS Safety Report 10039980 (Version 1)
Quarter: 2014Q1

REPORT INFORMATION
  Report Type: Spontaneous
  Country: US (occurrence: US)
  Receive Date: 20140326
  Receipt Date: 20140326
  Transmission Date: 20141002
  Serious: Yes (Other)
  Sender: FDA-Public Use
  Company Number: US-BAXTER-2014BAX015046

PATIENT
  Age: 65 Year
  Sex: Female
  Weight: 71 kg

DRUGS (5)
  1. SUPRANE (DESFLURANE, USP) [Suspect]
     Indication: MAINTENANCE OF ANAESTHESIA
     Dosage: 3-7%
     Route: 065
  2. NITROUS OXIDE [Suspect]
     Indication: MAINTENANCE OF ANAESTHESIA
     Route: 065
  3. FENTANYL [Suspect]
     Indication: MAINTENANCE OF ANAESTHESIA
     Route: 042
  4. ATENOLOL [Concomitant]
     Indication: HYPERTENSION
     Route: 065
  5. IBUPROFEN [Concomitant]
     Indication: PRODUCT USED FOR UNKNOWN INDICATION
     Route: 065

REACTIONS (4)
  - Drug-induced liver injury [Unknown]
  - Malaise [Unknown]
  - Arthralgia [Unknown]
  - Rash macular [Unknown]
